FAERS Safety Report 8603670-7 (Version None)
Quarter: 2012Q3

REPORT INFORMATION
  Report Type: 
  Country: None (occurrence: None)
  Receive Date: 20120817
  Receipt Date: 20120813
  Transmission Date: 20120928
  Serious: Yes (Other)
  Sender: FDA-Public Use
  Company Number: NZ-ABBOTT-11P-118-0845568-00

PATIENT
  Sex: Female

DRUGS (1)
  1. HUMIRA [Suspect]
     Indication: PRODUCT USED FOR UNKNOWN INDICATION

REACTIONS (4)
  - STAPHYLOCOCCAL SEPSIS [None]
  - BLOOD CULTURE POSITIVE [None]
  - STAPHYLOCOCCUS TEST POSITIVE [None]
  - MALAISE [None]
